FAERS Safety Report 17024752 (Version 3)
Quarter: 2021Q3

REPORT INFORMATION
  Report Type: Report from Study
  Country: US (occurrence: US)
  Receive Date: 20191113
  Receipt Date: 20210906
  Transmission Date: 20211014
  Serious: Yes (Other)
  Sender: FDA-Public Use
  Company Number: US-BEH-2019108260

PATIENT
  Age: 55 Year
  Sex: Male

DRUGS (3)
  1. PRIVIGEN [Suspect]
     Active Substance: HUMAN IMMUNOGLOBULIN G
     Indication: CHRONIC INFLAMMATORY DEMYELINATING POLYRADICULONEUROPATHY
     Dosage: UNK
     Route: 042
     Dates: start: 201504, end: 201906
  2. HIZENTRA [Suspect]
     Active Substance: HUMAN IMMUNOGLOBULIN G
     Indication: CHRONIC INFLAMMATORY DEMYELINATING POLYRADICULONEUROPATHY
     Dosage: 40 MILLILITER, QW
     Route: 058
     Dates: start: 201907
  3. HIZENTRA [Suspect]
     Active Substance: HUMAN IMMUNOGLOBULIN G
     Dosage: UNK
     Route: 058
     Dates: start: 20190701

REACTIONS (6)
  - Fatigue [Recovered/Resolved]
  - Sensory disturbance [Unknown]
  - Burning sensation [Unknown]
  - Vision blurred [Unknown]
  - Electric shock sensation [Unknown]
  - Extraocular muscle paresis [Unknown]
